FAERS Safety Report 12419638 (Version 1)
Quarter: 2016Q2

REPORT INFORMATION
  Report Type: Spontaneous
  Country: US (occurrence: US)
  Receive Date: 20160531
  Receipt Date: 20160531
  Transmission Date: 20160815
  Serious: No
  Sender: FDA-Public Use
  Company Number: US-ROXANE LABORATORIES, INC.-2016-RO-01053RO

PATIENT
  Sex: Female
  Weight: 70 kg

DRUGS (1)
  1. GALANTAMINE HYDROBROMIDE ORAL SOLUTION [Suspect]
     Active Substance: GALANTAMINE HYDROBROMIDE
     Indication: DEMENTIA ALZHEIMER^S TYPE
     Dosage: 2 MG
     Route: 048

REACTIONS (2)
  - Somnolence [Unknown]
  - Headache [Unknown]
